FAERS Safety Report 8436181-2 (Version None)
Quarter: 2012Q2

REPORT INFORMATION
  Report Type: 
  Country: None (occurrence: None)
  Receive Date: 20120614
  Receipt Date: 20120604
  Transmission Date: 20120825
  Serious: Yes (Other)
  Sender: FDA-Public Use
  Company Number: US-PFIZER INC-2012115067

PATIENT
  Sex: Female
  Weight: 94.331 kg

DRUGS (3)
  1. CELEBREX [Suspect]
     Indication: ARTHRITIS
     Dosage: 200 MG, OFF AND ON DAILY
     Dates: start: 19970101
  2. MELOXICAM [Suspect]
     Indication: ARTHRALGIA
     Dosage: 7.5 MG, DAILY
     Route: 048
  3. JANUVIA [Concomitant]
     Indication: DIABETES MELLITUS
     Dosage: UNK

REACTIONS (3)
  - ARTHROPATHY [None]
  - MOVEMENT DISORDER [None]
  - DRUG INEFFECTIVE [None]
